FAERS Safety Report 13996434 (Version 1)
Quarter: 2017Q3

REPORT INFORMATION
  Report Type: Spontaneous
  Country: US (occurrence: US)
  Receive Date: 20170921
  Receipt Date: 20170921
  Transmission Date: 20171128
  Serious: Yes (Other)
  Sender: FDA-Public Use
  Company Number: US-GLAXOSMITHKLINE-US2017GSK145969

PATIENT
  Age: 73 Year
  Sex: Female

DRUGS (2)
  1. BREO ELLIPTA [Suspect]
     Active Substance: FLUTICASONE FUROATE\VILANTEROL TRIFENATATE
     Indication: PRODUCT USED FOR UNKNOWN INDICATION
     Dosage: UNK
     Route: 055
     Dates: start: 201603
  2. TUDORZA PRESSAIR [Concomitant]
     Active Substance: ACLIDINIUM BROMIDE

REACTIONS (5)
  - Fall [Unknown]
  - Haemorrhage [Unknown]
  - Computerised tomogram abnormal [Unknown]
  - Lung carcinoma cell type unspecified recurrent [Unknown]
  - Biopsy lung normal [Unknown]

NARRATIVE: CASE EVENT DATE: 20170915
